FAERS Safety Report 10389092 (Version 2)
Quarter: 2014Q3

REPORT INFORMATION
  Report Type: Spontaneous
  Country: US (occurrence: US)
  Receive Date: 20140817
  Receipt Date: 20140817
  Transmission Date: 20150326
  Serious: Yes (Hospitalization, Other)
  Sender: FDA-Public Use
  Company Number: US-009507513-2010SP041962

PATIENT
  Sex: Female
  Weight: 65.77 kg

DRUGS (7)
  1. NUVARING [Suspect]
     Active Substance: ETHINYL ESTRADIOL\ETONOGESTREL
     Indication: DYSMENORRHOEA
  2. NUVARING [Suspect]
     Active Substance: ETHINYL ESTRADIOL\ETONOGESTREL
     Indication: CONTRACEPTION
  3. ANAPROX [Concomitant]
     Active Substance: NAPROXEN SODIUM
     Indication: DYSMENORRHOEA
  4. ACETAMINOPHEN (+) HYDROCODONE BITARTRATE [Concomitant]
     Active Substance: ACETAMINOPHEN\HYDROCODONE
     Indication: PAIN
     Dates: start: 20060504
  5. NUVARING [Suspect]
     Active Substance: ETHINYL ESTRADIOL\ETONOGESTREL
     Indication: DYSFUNCTIONAL UTERINE BLEEDING
     Route: 067
     Dates: start: 20060406, end: 20080731
  6. NUVARING [Suspect]
     Active Substance: ETHINYL ESTRADIOL\ETONOGESTREL
     Indication: MENSTRUATION IRREGULAR
  7. NAPROSYN [Suspect]
     Active Substance: NAPROXEN
     Indication: DYSMENORRHOEA
     Dosage: UNK
     Dates: start: 2007

REACTIONS (17)
  - Intracranial venous sinus thrombosis [Unknown]
  - Deep vein thrombosis [Recovered/Resolved]
  - Migraine [Not Recovered/Not Resolved]
  - Drug hypersensitivity [Unknown]
  - Gastroenteritis [Unknown]
  - Constipation [Unknown]
  - Generalised tonic-clonic seizure [Recovered/Resolved]
  - Gastrooesophageal reflux disease [Unknown]
  - Embolism arterial [Unknown]
  - Haemorrhage intracranial [Unknown]
  - Toe operation [Unknown]
  - Abdominal discomfort [Recovered/Resolved]
  - Cough [Unknown]
  - Thyroid disorder [Unknown]
  - Depression [Unknown]
  - Off label use [Recovered/Resolved]
  - Abdominal pain [Unknown]

NARRATIVE: CASE EVENT DATE: 20060406
